FAERS Safety Report 6140212-2 (Version None)
Quarter: 2009Q2

REPORT INFORMATION
  Report Type: 
  Country: None (occurrence: None)
  Receive Date: 20090401
  Receipt Date: 20090325
  Transmission Date: 20091009
  Serious: Yes (Other)
  Sender: FDA-Public Use
  Company Number: US-B.I. PHARMACEUTICALS,INC./RIDGEFIELD-2009-BP-03899PF

PATIENT
  Sex: Female
  Weight: 100 kg

DRUGS (14)
  1. SPIRIVA [Suspect]
     Indication: BRONCHITIS CHRONIC
     Dates: start: 20070101, end: 20080101
  2. SPIRIVA [Suspect]
     Indication: CHRONIC OBSTRUCTIVE PULMONARY DISEASE
  3. CHANTIX [Suspect]
     Indication: EX-TOBACCO USER
     Dates: start: 20070101, end: 20070101
  4. CHANTIX [Suspect]
     Dates: start: 20090101, end: 20090101
  5. CHANTIX [Suspect]
     Dates: start: 20090325
  6. LIPITOR [Concomitant]
  7. ASPIRIN [Concomitant]
  8. CLONAZEPAM [Concomitant]
  9. CLOPIDOGREL [Concomitant]
  10. ESCITALOPRAM (LEXAPRO) [Concomitant]
  11. FUROSEMIDE [Concomitant]
  12. AVAPRO [Concomitant]
  13. METOPROLOL [Concomitant]
  14. POTASSIUM (KLOR-CON) [Concomitant]

REACTIONS (5)
  - CHRONIC OBSTRUCTIVE PULMONARY DISEASE [None]
  - DRUG INEFFECTIVE [None]
  - DYSURIA [None]
  - NIGHTMARE [None]
  - TOBACCO USER [None]
